FAERS Safety Report 19384001 (Version 2)
Quarter: 2021Q2

REPORT INFORMATION
  Report Type: Spontaneous
  Country: US (occurrence: US)
  Receive Date: 20210607
  Receipt Date: 20210623
  Transmission Date: 20210717
  Serious: No
  Sender: FDA-Public Use
  Company Number: US-LUPIN PHARMACEUTICALS INC.-2021-08573

PATIENT
  Sex: Female

DRUGS (3)
  1. ALBUTEROL SULFATE INHALATION AEROSOL, 90 MCG/ACTUATION [Suspect]
     Active Substance: ALBUTEROL SULFATE
     Dosage: UNK, DAILY
     Dates: start: 20210501
  2. ALBUTEROL SULFATE INHALATION AEROSOL, 90 MCG/ACTUATION [Suspect]
     Active Substance: ALBUTEROL SULFATE
     Indication: ASTHMA
     Dosage: UNK UNK, QD
     Dates: start: 20210101
  3. SYMBICORT [Concomitant]
     Active Substance: BUDESONIDE\FORMOTEROL FUMARATE DIHYDRATE
     Indication: PRODUCT USED FOR UNKNOWN INDICATION
     Dosage: UNK
     Route: 065

REACTIONS (4)
  - Product preparation error [Unknown]
  - No adverse event [Unknown]
  - Device delivery system issue [Unknown]
  - Wrong technique in product usage process [Unknown]

NARRATIVE: CASE EVENT DATE: 2021
